FAERS Safety Report 9026116 (Version 1)
Quarter: 2013Q1

REPORT INFORMATION
  Report Type: Report from Study
  Country: US (occurrence: US)
  Receive Date: 20130122
  Receipt Date: 20130122
  Transmission Date: 20140127
  Serious: Yes (Hospitalization)
  Sender: FDA-Public Use
  Company Number: US-ASTRAZENECA-2013SE03515

PATIENT
  Age: 10 Year
  Sex: Male

DRUGS (2)
  1. SEROQUEL [Suspect]
     Dosage: GENERIC
     Route: 048
  2. SEROQUEL [Suspect]
     Route: 048

REACTIONS (1)
  - Psychiatric decompensation [Unknown]
